FAERS Safety Report 8291237-2 (Version None)
Quarter: 2012Q2

REPORT INFORMATION
  Report Type: 
  Country: None (occurrence: None)
  Receive Date: 20120417
  Receipt Date: 20120404
  Transmission Date: 20120825
  Serious: Yes (Hospitalization)
  Sender: FDA-Public Use
  Company Number: CA-FRI-1000022158

PATIENT
  Age: 17 Year
  Sex: Female
  Weight: 45 kg

DRUGS (6)
  1. CLONAZEPAM [Concomitant]
     Dosage: 1 MG
     Route: 048
  2. PEG-LYTE [Concomitant]
     Dosage: 50 ML
  3. CELEXA [Suspect]
     Indication: ANXIETY
  4. BACLOFEN [Concomitant]
     Dosage: 30 MG
     Route: 048
  5. CELEXA [Suspect]
     Indication: PANIC ATTACK
     Dosage: 20 MG
     Route: 048
     Dates: end: 20100823
  6. TRAZODONE HCL [Suspect]
     Indication: SLEEP DISORDER
     Dosage: 50 MG
     Route: 048
     Dates: end: 20100823

REACTIONS (4)
  - BLOOD LACTATE DEHYDROGENASE INCREASED [None]
  - ALANINE AMINOTRANSFERASE INCREASED [None]
  - SEROTONIN SYNDROME [None]
  - ASPARTATE AMINOTRANSFERASE INCREASED [None]
